FAERS Safety Report 5235049-2 (Version None)
Quarter: 2007Q1

REPORT INFORMATION
  Report Type: 
  Country: None (occurrence: None)
  Receive Date: 20070206
  Receipt Date: 20070129
  Transmission Date: 20070707
  Serious: Yes (Life-Threatening, Hospitalization, Disabling)
  Sender: FDA-Public Use
  Company Number: WAES 0701FRA00074

PATIENT
  Age: 58 Year
  Sex: Female

DRUGS (9)
  1. CANCIDAS [Suspect]
     Indication: HIV INFECTION
     Dosage: 400 MG/BID PO
     Route: 048
     Dates: start: 20070123, end: 20070128
  2. ABACAVIR SULFATE (+) LAMIVUDINE [Concomitant]
  3. CASPOFUNGIN ACETATE [Concomitant]
  4. DARUNAVIR [Concomitant]
  5. ENFUVIRTIDE [Concomitant]
  6. FOSCARNET NA [Concomitant]
  7. PREDNISONE 50MG TAB [Concomitant]
  8. SULFAMETHOXAZOLE + TRIMETHOPRIM [Concomitant]
  9. ZIDOVUDINE [Concomitant]

REACTIONS (1)
  - STATUS EPILEPTICUS [None]
